FAERS Safety Report 18136432 (Version 1)
Quarter: 2020Q3

REPORT INFORMATION
  Report Type: Spontaneous
  Country: US (occurrence: US)
  Receive Date: 20200811
  Receipt Date: 20200811
  Transmission Date: 20201103
  Serious: Yes (Other)
  Sender: FDA-Public Use
  Company Number: US-PFIZER INC-2020301039

PATIENT
  Age: 32 Year

DRUGS (2)
  1. LYRICA [Suspect]
     Active Substance: PREGABALIN
     Indication: NEURALGIA
     Dosage: 25 MG
  2. LYRICA [Suspect]
     Active Substance: PREGABALIN
     Dosage: 165 MG
     Dates: start: 20200327

REACTIONS (18)
  - Fall [Unknown]
  - Back injury [Unknown]
  - Vomiting [Unknown]
  - Myalgia [Unknown]
  - Feeling abnormal [Unknown]
  - Coordination abnormal [Unknown]
  - Near death experience [Unknown]
  - Nerve injury [Unknown]
  - Pyrexia [Unknown]
  - Visual field defect [Unknown]
  - Dizziness [Unknown]
  - Gait disturbance [Unknown]
  - Balance disorder [Unknown]
  - Withdrawal syndrome [Unknown]
  - Cardiac arrest [Unknown]
  - Injury [Unknown]
  - Headache [Unknown]
  - Chills [Unknown]

NARRATIVE: CASE EVENT DATE: 20200327
